FAERS Safety Report 6291823-5 (Version None)
Quarter: 2009Q3

REPORT INFORMATION
  Report Type: 
  Country: None (occurrence: None)
  Receive Date: 20090729
  Receipt Date: 20090717
  Transmission Date: 20100115
  Serious: Yes (Death, Hospitalization)
  Sender: FDA-Public Use
  Company Number: 2009AL001468

PATIENT
  Age: 65 Year
  Sex: Male

DRUGS (4)
  1. DIGOXIN [Suspect]
     Dosage: PO
     Route: 048
  2. ACTOS [Concomitant]
  3. CELEXA [Concomitant]
  4. ASPIRIN [Concomitant]

REACTIONS (11)
  - ANOXIC ENCEPHALOPATHY [None]
  - ANXIETY [None]
  - ECONOMIC PROBLEM [None]
  - FEAR [None]
  - GASTROINTESTINAL HAEMORRHAGE [None]
  - HYPOKALAEMIA [None]
  - ILL-DEFINED DISORDER [None]
  - INJURY [None]
  - NEUROLOGICAL DECOMPENSATION [None]
  - UNRESPONSIVE TO STIMULI [None]
  - VENTRICULAR FIBRILLATION [None]
